FAERS Safety Report 7717212-1 (Version None)
Quarter: 2011Q3

REPORT INFORMATION
  Report Type: 
  Country: None (occurrence: None)
  Receive Date: 20110826
  Receipt Date: 20110826
  Transmission Date: 20111222
  Serious: Yes (Life-Threatening, Hospitalization)
  Sender: FDA-Public Use
  Company Number: None

PATIENT
  Age: 66 Year
  Sex: Male
  Weight: 80.6 kg

DRUGS (1)
  1. MOXIFLOXACIN [Suspect]
     Indication: PNEUMONIA
     Dosage: 1400 MG EVERY DAY PO
     Route: 048
     Dates: start: 20100525, end: 20100529

REACTIONS (3)
  - TORSADE DE POINTES [None]
  - BLOOD POTASSIUM DECREASED [None]
  - CARDIAC ARREST [None]
